FAERS Safety Report 5619286-0 (Version None)
Quarter: 2008Q1

REPORT INFORMATION
  Report Type: 
  Country: None (occurrence: None)
  Receive Date: 20080205
  Receipt Date: 20080128
  Transmission Date: 20080703
  Serious: Yes (Other)
  Sender: FDA-Public Use
  Company Number: JPI-P-002942

PATIENT
  Age: 77 Year
  Sex: Female

DRUGS (7)
  1. XYREM [Suspect]
     Indication: CATAPLEXY
     Dosage: 4.5 GM (2.25 GM, 2 IN 1 D), ORAL; 6 MG (3 GM, 2 IN 1 D), ORAL
     Route: 048
     Dates: end: 20071101
  2. APO-HYDROCHLOROTHIAZIDE (HYDROCHLOROTHIAZIDE) [Concomitant]
  3. TOLTERODINE TARTRATE (TOLTERODINE L-TARTRATE) [Concomitant]
  4. IBUPROFEN [Concomitant]
  5. AMLODIPINE BESYLATE [Concomitant]
  6. VITAMIN D [Concomitant]
  7. MULTIVITAMIN (MULTIVITAMIN /00831701/) [Concomitant]

REACTIONS (3)
  - HALLUCINATION, VISUAL [None]
  - NAUSEA [None]
  - SOCIAL AVOIDANT BEHAVIOUR [None]
